FAERS Safety Report 23318936 (Version 2)
Quarter: 2024Q1

REPORT INFORMATION
  Report Type: Report from Study
  Country: US (occurrence: US)
  Receive Date: 20231220
  Receipt Date: 20240104
  Transmission Date: 20240409
  Serious: Yes (Other)
  Sender: FDA-Public Use
  Company Number: US-ABBVIE-5548562

PATIENT
  Age: 55 Year
  Sex: Male
  Weight: 76 kg

DRUGS (3)
  1. SKYRIZI [Suspect]
     Active Substance: RISANKIZUMAB-RZAA
     Indication: Psoriasis
     Dosage: FORM STRENGTH: 150 MG
     Route: 058
     Dates: start: 20231102, end: 20231102
  2. SKYRIZI [Suspect]
     Active Substance: RISANKIZUMAB-RZAA
     Dosage: FORM STRENGTH: 150 MG
     Route: 058
     Dates: start: 20231130, end: 20231130
  3. EM-MEDICAL [Concomitant]
     Indication: Crohn^s disease
     Dosage: MEDICAL MARIJUANA

REACTIONS (9)
  - Stoma site pain [Recovered/Resolved]
  - Pain [Recovered/Resolved]
  - Flatulence [Recovered/Resolved]
  - Constipation [Recovered/Resolved]
  - Stoma site oedema [Recovered/Resolved]
  - Constipation [Recovered/Resolved]
  - Stoma creation [Recovered/Resolved]
  - Psoriasis [Not Recovered/Not Resolved]
  - Diarrhoea [Unknown]

NARRATIVE: CASE EVENT DATE: 20231101
